FAERS Safety Report 5148369-7 (Version None)
Quarter: 2006Q4

REPORT INFORMATION
  Report Type: 
  Country: None (occurrence: None)
  Receive Date: 20061106
  Receipt Date: 20061024
  Transmission Date: 20070319
  Serious: Yes (Other)
  Sender: FDA-Public Use
  Company Number: 2006130679

PATIENT
  Age: 37 Year
  Sex: Male

DRUGS (2)
  1. GEODON [Suspect]
     Dosage: 40 MG (40 MG, 1 IN 1 D), ORAL
     Route: 048
  2. ESCITALOPRAM OXALATE [Concomitant]

REACTIONS (1)
  - ABASIA [None]
